FAERS Safety Report 9435873 (Version 1)
Quarter: 2013Q3

REPORT INFORMATION
  Report Type: Spontaneous
  Country: US (occurrence: None)
  Receive Date: 20130801
  Receipt Date: 20130801
  Transmission Date: 20140515
  Serious: Yes (Death, Hospitalization)
  Sender: FDA-Public Use
  Company Number: None

PATIENT
  Age: 82 Year
  Sex: Male

DRUGS (2)
  1. ELIQUIS [Suspect]
     Dosage: 2.5MG BID PO
     Route: 048
  2. IBUPROFEN [Suspect]
     Dosage: 800MG  TID  PO
     Route: 048

REACTIONS (4)
  - Lower gastrointestinal haemorrhage [None]
  - Haemoglobin decreased [None]
  - Haematocrit decreased [None]
  - Cardio-respiratory arrest [None]
